FAERS Safety Report 18489445 (Version 2)
Quarter: 2021Q1

REPORT INFORMATION
  Report Type: Other
  Country: CA (occurrence: CA)
  Receive Date: 20201111
  Receipt Date: 20210326
  Transmission Date: 20210419
  Serious: Yes (Hospitalization, Other)
  Sender: FDA-Public Use
  Company Number: CA-ACCORD-207821

PATIENT
  Age: 10 Year
  Sex: Male

DRUGS (42)
  1. RITUXIMAB. [Suspect]
     Active Substance: RITUXIMAB
     Indication: BURKITT^S LYMPHOMA
     Dosage: 375 MILLIGRAM/SQ. METER
     Route: 042
  2. HYDROCORTISONE. [Suspect]
     Active Substance: HYDROCORTISONE
     Indication: BURKITT^S LYMPHOMA STAGE III
     Dosage: 15 MG
     Route: 037
  3. CANCIDAS [Suspect]
     Active Substance: CASPOFUNGIN ACETATE
     Indication: PROPHYLAXIS
  4. LEVOFLOXACIN. [Concomitant]
     Active Substance: LEVOFLOXACIN
     Indication: PROPHYLAXIS
     Route: 048
  5. RASBURICASE [Concomitant]
     Active Substance: RASBURICASE
     Indication: PRODUCT USED FOR UNKNOWN INDICATION
  6. FILGRASTIM [Concomitant]
     Active Substance: FILGRASTIM
     Indication: PRODUCT USED FOR UNKNOWN INDICATION
  7. FOLINIC ACID [Suspect]
     Active Substance: LEUCOVORIN
     Indication: BURKITT^S LYMPHOMA
     Dosage: 15 MILLIGRAM/SQ. METER ONE EVERY 6 HOURS
  8. CYTARABINE/CYTARABINE HYDROCHLORIDE/CYTARABINE OCFOSFATE [Suspect]
     Active Substance: CYTARABINE
     Indication: BURKITT^S LYMPHOMA
     Dosage: 30 MG
     Route: 037
  9. METHOTREXATE. [Suspect]
     Active Substance: METHOTREXATE
     Indication: BURKITT^S LYMPHOMA STAGE III
     Dosage: 8000 MG PER SQUARE METER
     Route: 042
  10. DOXORUBICIN [Suspect]
     Active Substance: DOXORUBICIN
     Indication: BURKITT^S LYMPHOMA
     Dosage: 60 MILLIGRAM/SQ. METER, SOLUTION INTRAVENOUS
     Route: 042
  11. METHOTREXATE. [Suspect]
     Active Substance: METHOTREXATE
     Indication: BURKITT^S LYMPHOMA STAGE III
     Dosage: 3000 MG PER SQUARE METER
     Route: 042
  12. METHOTREXATE. [Suspect]
     Active Substance: METHOTREXATE
     Indication: BURKITT^S LYMPHOMA STAGE III
     Dosage: 15 MG
     Route: 037
  13. FOLINIC ACID [Concomitant]
     Active Substance: LEUCOVORIN
     Indication: PROPHYLAXIS
     Dosage: 5 MILLIGRAM/SQ. METER
  14. ETOPOSIDE. [Concomitant]
     Active Substance: ETOPOSIDE
     Indication: PRODUCT USED FOR UNKNOWN INDICATION
     Route: 065
  15. ETOPOSIDE. [Suspect]
     Active Substance: ETOPOSIDE
     Indication: BURKITT^S LYMPHOMA STAGE III
     Dosage: 150 MILLIGRAM/SQ. METER ONCE A DAY
     Route: 042
  16. VINCRISTINE [Suspect]
     Active Substance: VINCRISTINE
     Indication: BURKITT^S LYMPHOMA STAGE III
     Dosage: 1 MILLIGRAM/SQ. METER
     Route: 042
  17. CYTARABINE/CYTARABINE HYDROCHLORIDE/CYTARABINE OCFOSFATE [Suspect]
     Active Substance: CYTARABINE
     Indication: BURKITT^S LYMPHOMA
     Dosage: 50 MILLIGRAM/SQ. METER EVERY DAY
     Route: 042
  18. PREDNISONE. [Suspect]
     Active Substance: PREDNISONE
     Indication: METASTASES TO LIVER
  19. VINCRISTINE [Suspect]
     Active Substance: VINCRISTINE
     Indication: BURKITT^S LYMPHOMA STAGE III
     Dosage: 2 MILLIGRAM/SQ. METER
     Route: 042
  20. DOXORUBICIN [Suspect]
     Active Substance: DOXORUBICIN
     Indication: BURKITT^S LYMPHOMA
     Dosage: 60 MILLIGRAM/SQ. METER, SOLUTION INTRAVENOUS
     Route: 042
  21. GRANULOCYTE COLONY STIMULATING [Suspect]
     Active Substance: GRANULOCYTE COLONY-STIMULATING FACTOR NOS
     Indication: BURKITT^S LYMPHOMA
     Dosage: 5 MICROGRAM/KILOGRAM QD
     Route: 058
  22. PREDNISONE. [Suspect]
     Active Substance: PREDNISONE
     Indication: BURKITT^S LYMPHOMA STAGE III
     Dosage: 30 MILLIGRAM/SQ. METER, Q.12H
     Route: 048
  23. FILGRASTIM/GRANULOCYTE COLONY STIMULATING/LENOGRASTIM [Concomitant]
     Active Substance: GRANULOCYTE COLONY-STIMULATING FACTOR NOS
     Indication: PRODUCT USED FOR UNKNOWN INDICATION
  24. METHOTREXATE. [Suspect]
     Active Substance: METHOTREXATE
     Indication: BURKITT^S LYMPHOMA STAGE III
     Route: 037
  25. CYTARABINE/CYTARABINE HYDROCHLORIDE/CYTARABINE OCFOSFATE [Suspect]
     Active Substance: CYTARABINE
     Indication: BURKITT^S LYMPHOMA
     Dosage: 3000 MILLIGRAM/SQ. METER ONCE EVERY DAY
     Route: 042
  26. CYCLOPHOSPHAMIDE/CYCLOPHOSPHAMIDE MONOHYDRATE [Suspect]
     Active Substance: CYCLOPHOSPHAMIDE
     Indication: BURKITT^S LYMPHOMA STAGE III
     Dosage: 300 MILLIGRAM/SQ. METER
     Route: 042
  27. ETOPOSIDE. [Suspect]
     Active Substance: ETOPOSIDE
     Indication: BURKITT^S LYMPHOMA STAGE III
     Dosage: 200 MILLIGRAM/SQ. METER
     Route: 042
  28. METHOTREXATE. [Suspect]
     Active Substance: METHOTREXATE
     Indication: BURKITT^S LYMPHOMA STAGE III
     Dosage: 8000 MG PER SQUARE METER
     Route: 042
  29. VINCRISTINE [Suspect]
     Active Substance: VINCRISTINE
     Indication: BURKITT^S LYMPHOMA STAGE III
     Dosage: 2 MILLIGRAM/SQ. METER
     Route: 042
  30. LEUCOVORIN. [Suspect]
     Active Substance: LEUCOVORIN
     Indication: BURKITT^S LYMPHOMA STAGE III
     Dosage: 15 MILLIGRAM/SQ. METER, Q.6H
     Route: 042
  31. CYCLOPHOSPHAMIDE/CYCLOPHOSPHAMIDE MONOHYDRATE [Suspect]
     Active Substance: CYCLOPHOSPHAMIDE
     Indication: BURKITT^S LYMPHOMA STAGE III
     Dosage: 500 MILLIGRAM/SQ. METER
     Route: 042
  32. HYDROCORTISONE. [Suspect]
     Active Substance: HYDROCORTISONE
     Indication: BURKITT^S LYMPHOMA STAGE III
     Dosage: 8000 MILLIGRAM/SQ. METER
     Route: 037
  33. PREDNISONE. [Suspect]
     Active Substance: PREDNISONE
     Indication: METASTASES TO LYMPH NODES
     Dosage: 30 MILLIGRAM/SQ. METER, CYCLICAL
     Route: 048
  34. CYTARABINE/CYTARABINE HYDROCHLORIDE/CYTARABINE OCFOSFATE [Suspect]
     Active Substance: CYTARABINE
     Indication: BURKITT^S LYMPHOMA
     Dosage: 100 MILLIGRAM/SQ. METER
     Route: 037
  35. FOLINIC ACID [Concomitant]
     Active Substance: LEUCOVORIN
     Indication: PRODUCT USED FOR UNKNOWN INDICATION
     Dosage: 5 MILLIGRAM/SQ. METER
  36. CYCLOPHOSPHAMIDE/CYCLOPHOSPHAMIDE MONOHYDRATE [Suspect]
     Active Substance: CYCLOPHOSPHAMIDE
     Indication: BURKITT^S LYMPHOMA STAGE III
     Dosage: 300 MILLIGRAM/SQ. METER
     Route: 042
  37. CYTARABINE/CYTARABINE HYDROCHLORIDE/CYTARABINE OCFOSFATE [Suspect]
     Active Substance: CYTARABINE
     Indication: BURKITT^S LYMPHOMA
     Dosage: 50 MILLIGRAM/SQ. METER, Q.12H
     Route: 042
  38. RITUXIMAB. [Suspect]
     Active Substance: RITUXIMAB
     Indication: BURKITT^S LYMPHOMA
     Dosage: 250 MILLIGRAM/SQ. METER
     Route: 042
  39. HYDROCORTISONE. [Suspect]
     Active Substance: HYDROCORTISONE
     Indication: BURKITT^S LYMPHOMA STAGE III
     Dosage: 15 MILLIGRAM/SQ
     Route: 037
  40. FOLINIC ACID [Suspect]
     Active Substance: LEUCOVORIN
     Indication: BURKITT^S LYMPHOMA
     Dosage: 5 MILLIGRAM/SQ. METER
  41. CYCLOPHOSPHAMIDE/CYCLOPHOSPHAMIDE MONOHYDRATE [Suspect]
     Active Substance: CYCLOPHOSPHAMIDE
     Indication: BURKITT^S LYMPHOMA STAGE III
     Dosage: 250 MILLIGRAM/SQ. METER, 1 EVERY 12 HOURS
     Route: 042
  42. CYCLOPHOSPHAMIDE/CYCLOPHOSPHAMIDE MONOHYDRATE [Suspect]
     Active Substance: CYCLOPHOSPHAMIDE
     Indication: BURKITT^S LYMPHOMA STAGE III
     Route: 042

REACTIONS (9)
  - Skin disorder [Recovered/Resolved]
  - Febrile neutropenia [Recovered/Resolved]
  - Mucosal inflammation [Recovered/Resolved]
  - Gastroenteritis bacterial [Unknown]
  - Enteritis [Recovered/Resolved]
  - Candida infection [Recovered/Resolved]
  - Clostridium difficile infection [Recovered/Resolved]
  - Hypotension [Recovered/Resolved]
  - Rash erythematous [Unknown]
